FAERS Safety Report 4463170-5 (Version None)
Quarter: 2004Q3

REPORT INFORMATION
  Report Type: 
  Country: None (occurrence: None)
  Receive Date: 20040930
  Receipt Date: 20040818
  Transmission Date: 20050211
  Serious: Yes (Hospitalization)
  Sender: FDA-Public Use
  Company Number: MX-BRISTOL-MYERS SQUIBB COMPANY-12676367

PATIENT
  Age: 43 Year
  Sex: Female

DRUGS (4)
  1. ABATACEPT [Suspect]
     Indication: RHEUMATOID ARTHRITIS
     Dosage: DOSE INTERRUPTED ON 14-JUL-2004
     Route: 042
     Dates: start: 20040519
  2. METHOTREXATE [Suspect]
     Indication: RHEUMATOID ARTHRITIS
     Dates: start: 20020415, end: 20040825
  3. LEFLUNOMIDE [Concomitant]
     Dates: start: 20031109, end: 20040825
  4. FOLIC ACID [Concomitant]
     Dates: start: 20020415, end: 20040825

REACTIONS (1)
  - PNEUMONITIS [None]
